FAERS Safety Report 6228651-2 (Version None)
Quarter: 2009Q2

REPORT INFORMATION
  Report Type: 
  Country: None (occurrence: None)
  Receive Date: 20090612
  Receipt Date: 20090609
  Transmission Date: 20091009
  Serious: Yes (Hospitalization)
  Sender: FDA-Public Use
  Company Number: US-SANOFI-SYNTHELABO-F01200900540

PATIENT
  Sex: Female

DRUGS (12)
  1. LISINOPRIL [Concomitant]
  2. AVANDIA [Concomitant]
  3. CADUET [Concomitant]
     Dosage: UNK
  4. LEVAQUIN [Concomitant]
  5. METFORMIN HYDROCHLORIDE [Concomitant]
  6. IRINOTECAN HCL [Suspect]
  7. BLINDED PLACEBO [Suspect]
     Dosage: 150 MG
     Route: 048
     Dates: start: 20080925
  8. BLINDED GDC-0449 [Suspect]
     Dosage: 150 MG
     Route: 048
     Dates: start: 20080925
  9. BEVACIZUMAB [Suspect]
     Dates: start: 20080925
  10. OXALIPLATIN [Suspect]
     Indication: COLORECTAL CANCER METASTATIC
  11. FLUOROURACIL [Suspect]
  12. GABAPENTIN [Concomitant]

REACTIONS (1)
  - HYPEROSMOLAR STATE [None]
